FAERS Safety Report 12915283 (Version 1)
Quarter: 2016Q4

REPORT INFORMATION
  Report Type: Spontaneous
  Country: US (occurrence: US)
  Receive Date: 20161106
  Receipt Date: 20161106
  Transmission Date: 20170207
  Serious: No
  Sender: FDA-Public Use
  Company Number: US-RELYPSA-RLY2016002169

PATIENT
  Sex: Male

DRUGS (9)
  1. CALCITRIOL. [Concomitant]
     Active Substance: CALCITRIOL
  2. VELTASSA [Suspect]
     Active Substance: PATIROMER
     Indication: HYPERKALAEMIA
     Dosage: 8.4 G, QD
     Route: 048
     Dates: end: 2016
  3. ALLOPURINOL. [Concomitant]
     Active Substance: ALLOPURINOL
  4. ASPIRIN. [Concomitant]
     Active Substance: ASPIRIN
  5. DOXAZOSIN MESYLATE. [Concomitant]
     Active Substance: DOXAZOSIN MESYLATE
  6. GABAPENTIN. [Concomitant]
     Active Substance: GABAPENTIN
  7. VITAMINS NOS [Concomitant]
     Active Substance: VITAMINS
  8. GLYBURIDE. [Concomitant]
     Active Substance: GLYBURIDE
  9. AMLODIPINE BESYLATE. [Concomitant]
     Active Substance: AMLODIPINE BESYLATE

REACTIONS (3)
  - Drug dose omission [Unknown]
  - Constipation [Unknown]
  - Rash pruritic [Unknown]
